FAERS Safety Report 25886769 (Version 1)
Quarter: 2025Q4

REPORT INFORMATION
  Report Type: Spontaneous
  Country: JP (occurrence: JP)
  Receive Date: 20251006
  Receipt Date: 20251006
  Transmission Date: 20260118
  Serious: Yes (Other)
  Sender: B. BRAUN MEDICAL INC.
  Company Number: JP-B. Braun Medical Inc.-JP-BBM-202503852

PATIENT
  Age: 83 Year
  Sex: Male

DRUGS (1)
  1. CEFEPIME [Suspect]
     Active Substance: CEFEPIME HYDROCHLORIDE
     Indication: Burkholderia pseudomallei infection

REACTIONS (1)
  - Acute kidney injury [Unknown]
